FAERS Safety Report 7913181-X (Version None)
Quarter: 2011Q4

REPORT INFORMATION
  Report Type: 
  Country: None (occurrence: None)
  Receive Date: 20111114
  Receipt Date: 20111107
  Transmission Date: 20120403
  Serious: Yes (Death)
  Sender: FDA-Public Use
  Company Number: IT-ROCHE-1010553

PATIENT
  Sex: Male
  Weight: 54 kg

DRUGS (8)
  1. BISOPROLOL [Concomitant]
     Dates: start: 20090131
  2. ROCALTROL [Concomitant]
     Dates: start: 20111015
  3. MIRCERA [Suspect]
     Indication: RENAL FAILURE CHRONIC
     Route: 042
     Dates: start: 20110121
  4. OMEPRAZOL AL [Concomitant]
     Dates: start: 20110318
  5. RENAGEL [Concomitant]
     Dates: start: 20091114
  6. ATORVASTATIN [Concomitant]
     Dates: start: 20060731
  7. GABAPENTIN [Concomitant]
     Dates: start: 20110920
  8. TICLOPIDINE HCL [Concomitant]
     Dates: start: 20090516

REACTIONS (1)
  - SUDDEN DEATH [None]
